FAERS Safety Report 10850138 (Version 4)
Quarter: 2015Q1

REPORT INFORMATION
  Report Type: Spontaneous
  Country: US (occurrence: US)
  Receive Date: 20150221
  Receipt Date: 20150319
  Transmission Date: 20150721
  Serious: Yes (Other)
  Sender: FDA-Public Use
  Company Number: US-UNITED THERAPEUTICS-UNT-2015-001776

PATIENT
  Age: 9 Year
  Sex: Female
  Weight: 18.14 kg

DRUGS (5)
  1. ADCIRCA [Concomitant]
     Active Substance: TADALAFIL
     Indication: PRODUCT USED FOR UNKNOWN INDICATION
  2. REMODULIN [Suspect]
     Active Substance: TREPROSTINIL
     Indication: PULMONARY HYPERTENSION
     Dosage: 0.060 ?G/KG/MIN, CONTINUING
     Route: 041
     Dates: start: 20130307
  3. REMODULIN [Suspect]
     Active Substance: TREPROSTINIL
     Indication: PULMONARY ARTERIAL HYPERTENSION
     Dosage: 0.060 ?G/KG/MIN, CONTINUING
     Route: 041
     Dates: start: 20130423
  4. TRACLEER [Concomitant]
     Active Substance: BOSENTAN\BOSENTAN MONOHYDRATE
     Indication: PRODUCT USED FOR UNKNOWN INDICATION
  5. LETAIRIS [Concomitant]
     Active Substance: AMBRISENTAN
     Indication: PRODUCT USED FOR UNKNOWN INDICATION

REACTIONS (2)
  - Respiratory tract infection [Recovered/Resolved]
  - Pneumonia [Recovered/Resolved]

NARRATIVE: CASE EVENT DATE: 20150123
